FAERS Safety Report 23521399 (Version 4)
Quarter: 2024Q2

REPORT INFORMATION
  Report Type: Report from Study
  Country: US (occurrence: US)
  Receive Date: 20240214
  Receipt Date: 20240605
  Transmission Date: 20240716
  Serious: Yes (Hospitalization, Other)
  Sender: FDA-Public Use
  Company Number: US-ABBVIE-5582845

PATIENT
  Age: 67 Year
  Sex: Female
  Weight: 100 kg

DRUGS (21)
  1. HUMIRA [Suspect]
     Active Substance: ADALIMUMAB
     Indication: Colitis ulcerative
     Dosage: FORM STRENGTH: 40 MILLIGRAM, CITRATE FREE
     Route: 058
     Dates: start: 20210412
  2. HUMIRA [Suspect]
     Active Substance: ADALIMUMAB
     Dosage: FORM STRENGTH: 40 MILLIGRAM, CITRATE FREE
     Route: 058
  3. MIRALAX [Concomitant]
     Active Substance: POLYETHYLENE GLYCOL 3350
     Indication: Constipation
     Dosage: TIME INTERVAL: AS NECESSARY
  4. LACTASE [Concomitant]
     Active Substance: LACTASE
     Indication: Dairy intolerance
     Dosage: TIME INTERVAL: AS NECESSARY
  5. JANUVIA [Concomitant]
     Active Substance: SITAGLIPTIN PHOSPHATE
     Indication: Diabetes mellitus
     Dosage: FREQUENCY TEXT: X1
  6. METOPROLOL SUCCINATE [Concomitant]
     Active Substance: METOPROLOL SUCCINATE
     Indication: Hypertension
     Dosage: METOPROLOL SUCC ER, FREQUENCY TEXT: X1
  7. TOPIRAMATE [Concomitant]
     Active Substance: TOPIRAMATE
     Indication: Diabetes mellitus
     Dosage: FREQUENCY TEXT: X1
  8. VITAMIN D2 [Concomitant]
     Active Substance: ERGOCALCIFEROL
     Indication: Vitamin D deficiency
  9. PRAMIPEXOLE [Concomitant]
     Active Substance: PRAMIPEXOLE\PRAMIPEXOLE DIHYDROCHLORIDE
     Indication: Restless legs syndrome
     Dosage: FREQUENCY TEXT: X3
  10. EMETROL [Concomitant]
     Active Substance: DEXTROSE\FRUCTOSE\PHOSPHORIC ACID
     Indication: Nausea
     Dosage: TIME INTERVAL: AS NECESSARY
  11. TYLENOL EXTRA STRENGTH [Concomitant]
     Active Substance: ACETAMINOPHEN
     Indication: Pain
     Dosage: TIME INTERVAL: AS NECESSARY
  12. ATORVASTATIN [Concomitant]
     Active Substance: ATORVASTATIN
     Indication: Blood cholesterol abnormal
     Dosage: FREQUENCY TEXT: X1
  13. IRBESARTAN [Concomitant]
     Active Substance: IRBESARTAN
     Indication: Hypertension
     Dosage: FREQUENCY TEXT: X1
  14. ELETRIPTAN [Concomitant]
     Active Substance: ELETRIPTAN
     Indication: Migraine
     Dosage: TIME INTERVAL: AS NECESSARY
  15. DULOXETINE [Concomitant]
     Active Substance: DULOXETINE
     Indication: Antidepressant therapy
     Dosage: DULOXETINE HCL DR, FREQUENCY TEXT: X1
  16. DULOXETINE [Concomitant]
     Active Substance: DULOXETINE
     Indication: Antidepressant therapy
     Dosage: DULOXETINE HCL DR ,FREQUENCY TEXT: X1
  17. ALLEGRA-D [Concomitant]
     Active Substance: FEXOFENADINE HYDROCHLORIDE\PSEUDOEPHEDRINE HYDROCHLORIDE
     Indication: Hypersensitivity
     Dosage: TIME INTERVAL: AS NECESSARY
  18. CITRUCEL [Concomitant]
     Active Substance: METHYLCELLULOSE (4000 CPS)\METHYLCELLULOSE (4000 MPA.S)
     Indication: Product used for unknown indication
     Dosage: FREQUENCY TEXT: X1
  19. FUROSEMIDE [Concomitant]
     Active Substance: FUROSEMIDE
     Indication: Diuretic therapy
     Dosage: FREQUENCY TEXT: X1
  20. CYANOCOBALAMIN [Concomitant]
     Active Substance: CYANOCOBALAMIN
     Indication: Vitamin B12 deficiency
     Dosage: FORM STRENGTH: 1000 MICROGRAM
  21. OMEPRAZOLE [Concomitant]
     Active Substance: DONEPEZIL HYDROCHLORIDE\OMEPRAZOLE\OMEPRAZOLE MAGNESIUM
     Indication: Gastrooesophageal reflux disease
     Dosage: OMEPRAZOLE DR,FREQUENCY TEXT: X1

REACTIONS (28)
  - Constipation [Recovered/Resolved]
  - Swelling face [Unknown]
  - Diarrhoea [Unknown]
  - Impaired gastric emptying [Unknown]
  - Diverticulum intestinal [Not Recovered/Not Resolved]
  - Constipation [Unknown]
  - Gallbladder operation [Unknown]
  - Meniscus removal [Unknown]
  - Hysterectomy [Unknown]
  - Aortic aneurysm [Unknown]
  - Glucose tolerance impaired [Unknown]
  - Anxiety [Unknown]
  - Depression [Unknown]
  - Obesity [Unknown]
  - Gastrointestinal disorder [Unknown]
  - Spinal stenosis [Unknown]
  - Nephrolithiasis [Unknown]
  - Migraine [Unknown]
  - Rotator cuff syndrome [Unknown]
  - Arthropathy [Unknown]
  - Plantar fasciitis [Unknown]
  - Corrective lens user [Unknown]
  - Hearing aid user [Unknown]
  - Hypertension [Unknown]
  - Toothache [Unknown]
  - Rhinalgia [Unknown]
  - Swelling [Unknown]
  - Post procedural infection [Unknown]

NARRATIVE: CASE EVENT DATE: 20231001
